FAERS Safety Report 9095239 (Version 1)
Quarter: 2013Q1

REPORT INFORMATION
  Report Type: Spontaneous
  Country: CH (occurrence: CH)
  Receive Date: 20130219
  Receipt Date: 20130219
  Transmission Date: 20140127
  Serious: Yes (Hospitalization)
  Sender: FDA-Public Use
  Company Number: CH-MERCK-1302CHE007753

PATIENT
  Age: 33 Year
  Sex: Female

DRUGS (4)
  1. SYCREST [Suspect]
     Indication: MANIA
     Dosage: 10 MG, BID
     Route: 048
     Dates: start: 20130201
  2. SYCREST [Suspect]
     Indication: DEPRESSIVE SYMPTOM
  3. SYCREST [Suspect]
     Indication: MANIA
     Dosage: 5 MG, BID
     Route: 048
     Dates: start: 20130211
  4. SYCREST [Suspect]
     Indication: DEPRESSIVE SYMPTOM
     Dosage: A QUARTER OF A 5 MG TABLET, Q3H
     Route: 048
     Dates: start: 20130212

REACTIONS (13)
  - Suicide attempt [Unknown]
  - Binge eating [Recovered/Resolved]
  - Muscular weakness [Recovered/Resolved]
  - Visual acuity reduced [Recovered/Resolved]
  - Hallucination, visual [Recovered/Resolved]
  - Nausea [Recovered/Resolved]
  - Insomnia [Unknown]
  - Fatigue [Recovered/Resolved]
  - Paraesthesia oral [Recovered/Resolved]
  - Muscle twitching [Recovered/Resolved]
  - Dizziness [Unknown]
  - Increased appetite [Recovered/Resolved]
  - Drug administration error [Not Recovered/Not Resolved]
